FAERS Safety Report 24836997 (Version 2)
Quarter: 2025Q1

REPORT INFORMATION
  Report Type: Report from Study
  Country: US (occurrence: US)
  Receive Date: 20250113
  Receipt Date: 20250128
  Transmission Date: 20250408
  Serious: Yes (Other)
  Sender: ABBVIE
  Company Number: US-ABBVIE-6080807

PATIENT
  Age: 61 Year
  Sex: Female
  Weight: 78.925 kg

DRUGS (4)
  1. CREON [Suspect]
     Active Substance: PANCRELIPASE AMYLASE\PANCRELIPASE LIPASE\PANCRELIPASE PROTEASE
     Indication: Pancreatic failure
     Route: 048
     Dates: start: 202410
  2. CARVEDILOL [Concomitant]
     Active Substance: CARVEDILOL
     Indication: Renal transplant
  3. PROGRAF [Concomitant]
     Active Substance: TACROLIMUS
     Indication: Renal transplant
  4. PREDNISONE [Concomitant]
     Active Substance: PREDNISONE
     Indication: Renal transplant

REACTIONS (2)
  - Pericardial effusion [Recovering/Resolving]
  - Illness [Recovered/Resolved]

NARRATIVE: CASE EVENT DATE: 20241210
